FAERS Safety Report 7574120-7 (Version None)
Quarter: 2011Q2

REPORT INFORMATION
  Report Type: 
  Country: None (occurrence: None)
  Receive Date: 20110627
  Receipt Date: 20110615
  Transmission Date: 20111010
  Serious: Yes (Other)
  Sender: FDA-Public Use
  Company Number: PHHY2011BR53773

PATIENT
  Age: 76 Year
  Sex: Female

DRUGS (1)
  1. DIOVAN HCT [Suspect]
     Indication: HYPERTENSION
     Dosage: 1 DF (IN THE MORNING) (160 MG VALS AND 12.5 MG HYDR)

REACTIONS (5)
  - CATARACT [None]
  - EXTRAVASATION [None]
  - BLOOD PRESSURE INCREASED [None]
  - BLOOD PRESSURE INADEQUATELY CONTROLLED [None]
  - VENOUS OCCLUSION [None]
